FAERS Safety Report 4398172-0 (Version None)
Quarter: 2004Q3

REPORT INFORMATION
  Report Type: 
  Country: None (occurrence: None)
  Receive Date: 20040714
  Receipt Date: 20040714
  Transmission Date: 20050211
  Serious: Yes (Other)
  Sender: FDA-Public Use
  Company Number: None

PATIENT
  Age: 47 Year
  Sex: Male
  Weight: 113.3993 kg

DRUGS (1)
  1. LIPITOR [Suspect]
     Indication: BLOOD CHOLESTEROL INCREASED
     Dosage: 10 MG DAILY ORAL
     Route: 048
     Dates: start: 20000401, end: 20040630

REACTIONS (7)
  - ASTHENIA [None]
  - BLOOD CREATINE PHOSPHOKINASE INCREASED [None]
  - FATIGUE [None]
  - MUSCLE CRAMP [None]
  - MYALGIA [None]
  - PAIN IN EXTREMITY [None]
  - TEMPERATURE INTOLERANCE [None]
